FAERS Safety Report 8006378-4 (Version None)
Quarter: 2011Q4

REPORT INFORMATION
  Report Type: 
  Country: None (occurrence: None)
  Receive Date: 20111226
  Receipt Date: 20111213
  Transmission Date: 20120403
  Serious: Yes (Hospitalization, Other)
  Sender: FDA-Public Use
  Company Number: PHHY2011FR109266

PATIENT
  Sex: Male

DRUGS (20)
  1. NEORAL [Suspect]
     Indication: RENAL TRANSPLANT
     Dosage: 120 MG, DAILY
     Dates: start: 20110926
  2. LERCANIDIPINE [Concomitant]
     Dosage: 10 MG, DAILY
  3. ASPIRIN [Concomitant]
     Dosage: 75 MG, DAILY
  4. NEBIVOLOL HCL [Concomitant]
     Dosage: 5 MG, DAILY
  5. VALSARTAN [Concomitant]
     Dosage: 120 MG,DAILY
  6. LASIX [Concomitant]
     Dosage: 160 MG, DAILY
  7. MIRCERA [Concomitant]
     Dosage: 75 UG, MONTHLY
  8. AUGMENTIN [Suspect]
     Indication: BRONCHITIS
     Dosage: UNK UKN, UNK
     Dates: start: 20111101
  9. PREDNISOLONE [Concomitant]
     Dosage: 10 MG, DAILY
  10. ALUMINUM HYDROXIDE AND MAGNESIUM TRISILICATE [Suspect]
     Dosage: UNK UKN, UNK
  11. LASIX [Concomitant]
     Dosage: 500 MG, QD
     Dates: start: 20111118
  12. EUPRESSYL [Concomitant]
     Dosage: 180 MG, DAILY
  13. ESOMEPRAZOLE [Concomitant]
     Dosage: 40 MG, DAILY
  14. PHYSIOTENS [Concomitant]
     Dosage: 0.4 MG, DAILY
  15. PRAZOSIN HCL [Concomitant]
     Dosage: 5 MG, DAILY
  16. NEORAL [Suspect]
     Dosage: 140 MG, DAILY
     Dates: start: 20111011, end: 20111118
  17. TIORFAN [Suspect]
     Dosage: UNK UKN, UNK
     Dates: start: 20110922
  18. MYCOPHENOLATE MOFETIL (CELLCEPT) [Concomitant]
     Dosage: UNK UKN, UNK
     Dates: start: 20111118
  19. PREDNISOLONE [Concomitant]
     Dosage: 20 MG, DAILY
     Dates: start: 20111118
  20. MYCOPHENOLATE MOFETIL (CELLCEPT) [Concomitant]
     Dosage: UNK UKN, UNK
     Dates: end: 20110930

REACTIONS (14)
  - EOSINOPHILIA [None]
  - GENERALISED ERYTHEMA [None]
  - HUMAN HERPESVIRUS 6 INFECTION [None]
  - FLUID OVERLOAD [None]
  - RASH ERYTHEMATOUS [None]
  - DRUG RASH WITH EOSINOPHILIA AND SYSTEMIC SYMPTOMS [None]
  - VIRAL INFECTION [None]
  - EPSTEIN-BARR VIRUS INFECTION [None]
  - CREATININE RENAL CLEARANCE DECREASED [None]
  - PRURITUS [None]
  - PURPURA [None]
  - RASH MACULO-PAPULAR [None]
  - SKIN EXFOLIATION [None]
  - ERYTHEMA INFECTIOSUM [None]
